FAERS Safety Report 7184077-9 (Version None)
Quarter: 2010Q4

REPORT INFORMATION
  Report Type: 
  Country: None (occurrence: None)
  Receive Date: 20101222
  Receipt Date: 20101210
  Transmission Date: 20110411
  Serious: Yes (Other)
  Sender: FDA-Public Use
  Company Number: PHHY2010US80138

PATIENT
  Sex: Female

DRUGS (15)
  1. GILENYA [Suspect]
     Indication: RELAPSING-REMITTING MULTIPLE SCLEROSIS
     Dosage: 0.5 MG, QD
     Route: 048
     Dates: start: 20101115
  2. BUSPAR [Concomitant]
     Dosage: 30 MG, BID
  3. CELEXA [Concomitant]
     Dosage: 40 MG, QD
  4. VITAMIN B-12 [Concomitant]
     Dosage: UNK
  5. CLONOPIN [Concomitant]
     Dosage: UNK
  6. LAMICTAL [Concomitant]
     Dosage: UNK
  7. MIRALAX [Concomitant]
     Dosage: UNK
  8. PROVIGIL [Concomitant]
     Dosage: UNK
  9. ZANAFLEX [Concomitant]
     Dosage: UNK
  10. CYANOCOBALAMIN [Concomitant]
     Dosage: 1 CC IM TWICE A WEEK
  11. FLEXERIL [Concomitant]
     Dosage: 10 MG, TID
  12. KLONOPIN [Concomitant]
     Dosage: 2.5 TABLETS PER DAY, PRN
  13. LAMOTRIGINE [Concomitant]
     Dosage: 150 MG, BID
  14. LUNESTA [Concomitant]
     Dosage: 3 MG, TABS, 1 EVERY BEDTIME
  15. PHENERGAN ^AVENTIS PHARMA^ [Concomitant]
     Dosage: 25 MG CPS, 1 EVERY 4-6 HOURS AS NEEDED

REACTIONS (36)
  - AMNESIA [None]
  - BACK PAIN [None]
  - BALANCE DISORDER [None]
  - BIPOLAR DISORDER [None]
  - BLOOD PRESSURE INCREASED [None]
  - BONE PAIN [None]
  - COMPLEX PARTIAL SEIZURES [None]
  - DIZZINESS [None]
  - DYSPHAGIA [None]
  - DYSPNOEA [None]
  - FATIGUE [None]
  - FLUID RETENTION [None]
  - GASTROINTESTINAL DISORDER [None]
  - HEADACHE [None]
  - HYPERHIDROSIS [None]
  - INTERVERTEBRAL DISC PROTRUSION [None]
  - LYMPHOCYTE COUNT DECREASED [None]
  - MALAISE [None]
  - MUSCLE SPASMS [None]
  - MUSCULAR WEAKNESS [None]
  - NAUSEA [None]
  - NECK PAIN [None]
  - NEUTROPHIL COUNT INCREASED [None]
  - PAIN [None]
  - PHONOPHOBIA [None]
  - PLATELET COUNT DECREASED [None]
  - RAYNAUD'S PHENOMENON [None]
  - RELAPSING-REMITTING MULTIPLE SCLEROSIS [None]
  - SENSORY DISTURBANCE [None]
  - THYROID DISORDER [None]
  - TINNITUS [None]
  - VERTIGO [None]
  - VISION BLURRED [None]
  - VITAMIN B12 DEFICIENCY [None]
  - WEIGHT INCREASED [None]
  - WHITE BLOOD CELL COUNT DECREASED [None]
